FAERS Safety Report 8648085 (Version 5)
Quarter: 2014Q2

REPORT INFORMATION
  Report Type: Spontaneous
  Country: US (occurrence: US)
  Receive Date: 20120703
  Receipt Date: 20131018
  Transmission Date: 20141212
  Serious: Yes (Other)
  Sender: FDA-Public Use
  Company Number: US-PFIZER INC-2012156997

PATIENT
  Age: 59 Year
  Sex: Female
  Weight: 52.15 kg

DRUGS (2)
  1. DILANTIN-125 [Suspect]
     Indication: CONVULSION
     Dosage: UNK
     Route: 048
     Dates: start: 2007, end: 2010
  2. DEPAKOTE [Concomitant]
     Indication: CONVULSION
     Dosage: UNK

REACTIONS (8)
  - Tooth loss [Unknown]
  - Convulsion [Unknown]
  - Swelling face [Not Recovered/Not Resolved]
  - Gingival swelling [Not Recovered/Not Resolved]
  - Tooth fracture [Unknown]
  - Tooth impacted [Unknown]
  - Oral pain [Unknown]
  - Headache [Unknown]
